FAERS Safety Report 6150643-2 (Version None)
Quarter: 2009Q2

REPORT INFORMATION
  Report Type: 
  Country: None (occurrence: None)
  Receive Date: 20090409
  Receipt Date: 20090331
  Transmission Date: 20091009
  Serious: Yes (Death, Life-Threatening)
  Sender: FDA-Public Use
  Company Number: DE-ABBOTT-09P-062-0561145-00

PATIENT
  Sex: Male

DRUGS (6)
  1. VALPROATE SODIUM [Suspect]
     Indication: EPILEPSY
     Route: 048
  2. GABAPENTIN [Suspect]
     Indication: EPILEPSY
     Route: 048
  3. PROMETHAZINE [Suspect]
     Indication: BRAIN INJURY
     Route: 048
  4. TRI-THIAZID [Suspect]
     Indication: OEDEMA
     Route: 048
  5. RISPERDAL [Suspect]
     Indication: BRAIN INJURY
     Route: 048
  6. ALCOHOL [Concomitant]
     Indication: DRUG USE FOR UNKNOWN INDICATION
     Route: 048

REACTIONS (12)
  - BLOOD CREATINE PHOSPHOKINASE INCREASED [None]
  - BONE MARROW FAILURE [None]
  - COAGULOPATHY [None]
  - DRUG LEVEL ABOVE THERAPEUTIC [None]
  - GASTROINTESTINAL HAEMORRHAGE [None]
  - HYPOKALAEMIA [None]
  - HYPONATRAEMIA [None]
  - LEUKOPENIA [None]
  - MULTI-ORGAN FAILURE [None]
  - PROTEINURIA [None]
  - RENAL FAILURE ACUTE [None]
  - THROMBOCYTOPENIA [None]
